FAERS Safety Report 9536215 (Version 2)
Quarter: 2013Q3

REPORT INFORMATION
  Report Type: Spontaneous
  Country: US (occurrence: None)
  Receive Date: 20130507
  Receipt Date: 20130724
  Transmission Date: 20140515
  Serious: Yes (Other)
  Sender: FDA-Public Use
  Company Number: PHEH2013US003918

PATIENT
  Age: 66 Year
  Sex: Female
  Weight: 70 kg

DRUGS (5)
  1. AFINITOR (RAD) [Suspect]
     Indication: BREAST CANCER
     Route: 048
     Dates: start: 20121126, end: 20130211
  2. XELODA (CAPECITABINE) [Concomitant]
  3. SODIUM PHENYLBUTYRATE (SODIUM PHENYLBUTYRATE) [Concomitant]
  4. XGEVA (DENSUMAB) [Concomitant]
  5. NEXAVAR (SORAFENIB TOSILATE) [Concomitant]

REACTIONS (2)
  - White blood cell count decreased [None]
  - Neutrophil count decreased [None]
